FAERS Safety Report 22651223 (Version 1)
Quarter: 2023Q2

REPORT INFORMATION
  Report Type: Spontaneous
  Country: CN (occurrence: None)
  Receive Date: 20230628
  Receipt Date: 20230628
  Transmission Date: 20230722
  Serious: Yes (Life-Threatening)
  Sender: FDA-Public Use
  Company Number: 2023A148149

PATIENT
  Age: 17166 Day
  Sex: Female
  Weight: 57 kg

DRUGS (3)
  1. BUDESONIDE [Suspect]
     Active Substance: BUDESONIDE
     Indication: Symptomatic treatment
     Route: 055
     Dates: start: 20230614, end: 20230614
  2. SODIUM CHLORIDE [Concomitant]
     Active Substance: SODIUM CHLORIDE
     Indication: Vehicle solution use
     Route: 055
     Dates: start: 20230614, end: 20230614
  3. OXYGEN [Concomitant]
     Active Substance: OXYGEN
     Dosage: 0.9 PERCENT
     Route: 055
     Dates: start: 20230614, end: 20230614

REACTIONS (8)
  - Dyspnoea [Recovering/Resolving]
  - Hypoaesthesia [Recovering/Resolving]
  - Suffocation feeling [Recovering/Resolving]
  - Mobility decreased [Recovering/Resolving]
  - Asthenia [Recovering/Resolving]
  - Electric shock sensation [Recovering/Resolving]
  - Rash [Recovering/Resolving]
  - Cough [Recovering/Resolving]

NARRATIVE: CASE EVENT DATE: 20230614
